FAERS Safety Report 19577384 (Version 5)
Quarter: 2021Q3

REPORT INFORMATION
  Report Type: Spontaneous
  Country: US (occurrence: US)
  Receive Date: 20210719
  Receipt Date: 20210915
  Transmission Date: 20211014
  Serious: Yes (Other)
  Sender: FDA-Public Use
  Company Number: US-BAYER-2021-174576

PATIENT
  Age: 24 Year
  Sex: Male

DRUGS (11)
  1. KOVALTRY [Suspect]
     Active Substance: ANTIHEMOPHILIC FACTOR, HUMAN RECOMBINANT
     Dosage: 3326 U, UNK
     Route: 042
  2. KOVALTRY [Suspect]
     Active Substance: ANTIHEMOPHILIC FACTOR, HUMAN RECOMBINANT
     Dosage: 2 DF; INFUSED FOR INJURY TO BACK OF HEAD
     Route: 042
     Dates: start: 202108
  3. KOVALTRY [Suspect]
     Active Substance: ANTIHEMOPHILIC FACTOR, HUMAN RECOMBINANT
     Dosage: 3 DF; USED 3 DOSES SO FAR FOR GENERAL BRUISING PAST MONTH
     Dates: start: 2021
  4. KOVALTRY [Suspect]
     Active Substance: ANTIHEMOPHILIC FACTOR, HUMAN RECOMBINANT
     Dosage: 1 DF; FOR RIGHT WRIST BLEED
  5. KOVALTRY [Suspect]
     Active Substance: ANTIHEMOPHILIC FACTOR, HUMAN RECOMBINANT
     Dosage: 1 DF, ONCE TO TREAT NECK AND HAND MUSCLE PROBLEMS
     Dates: start: 20210811, end: 20210811
  6. KOVALTRY [Suspect]
     Active Substance: ANTIHEMOPHILIC FACTOR, HUMAN RECOMBINANT
     Dosage: 3292 ? 3650 UNITS
     Route: 042
  7. KOVALTRY [Suspect]
     Active Substance: ANTIHEMOPHILIC FACTOR, HUMAN RECOMBINANT
     Dosage: 1 DF, ONCE TO TREAT LOWER (R) BACK MUSCLE PROBLEMS
     Dates: start: 20210803, end: 20210803
  8. KOVALTRY [Suspect]
     Active Substance: ANTIHEMOPHILIC FACTOR, HUMAN RECOMBINANT
     Dosage: 2920?3650 UNITS
     Route: 042
  9. KOVALTRY [Suspect]
     Active Substance: ANTIHEMOPHILIC FACTOR, HUMAN RECOMBINANT
     Dosage: 3285 UNK
  10. KOVALTRY [Suspect]
     Active Substance: ANTIHEMOPHILIC FACTOR, HUMAN RECOMBINANT
     Dosage: 1 DF; TO TREAT RIGHT HIP BLEED
     Dates: start: 20210720
  11. KOVALTRY [Suspect]
     Active Substance: ANTIHEMOPHILIC FACTOR, HUMAN RECOMBINANT
     Dosage: 2 DOSES TO TREAT ANKLE BLEED AND 1 DOSE TO TREAT ELBOW BLEED
     Dates: start: 202108

REACTIONS (11)
  - Muscle disorder [Recovered/Resolved]
  - Haemarthrosis [Recovered/Resolved]
  - Contusion [Recovered/Resolved]
  - Joint swelling [Recovering/Resolving]
  - Haemarthrosis [Recovered/Resolved]
  - Haemarthrosis [Recovered/Resolved]
  - Haemarthrosis [Not Recovered/Not Resolved]
  - Head injury [Recovered/Resolved]
  - Limb injury [Recovered/Resolved]
  - Muscle disorder [Recovered/Resolved]
  - Fall [Recovered/Resolved]

NARRATIVE: CASE EVENT DATE: 2021
